FAERS Safety Report 9454429 (Version 1)
Quarter: 2013Q3

REPORT INFORMATION
  Report Type: Spontaneous
  Country: US (occurrence: None)
  Receive Date: 20130808
  Receipt Date: 20130808
  Transmission Date: 20140515
  Serious: Yes (Other)
  Sender: FDA-Public Use
  Company Number: 20130365

PATIENT
  Age: 6 Year
  Sex: Female
  Weight: 21.7 kg

DRUGS (7)
  1. SODIUM BICARBONATE [Suspect]
  2. LISDEXAMFETAMINE (VYVANSE) [Concomitant]
  3. BENZODIAZEPINES [Concomitant]
  4. SALINE [Concomitant]
  5. DEXTROSE [Concomitant]
  6. POTASSIUM [Concomitant]
  7. LORAZEPAM [Concomitant]

REACTIONS (6)
  - Serotonin syndrome [None]
  - Overdose [None]
  - Hypokalaemia [None]
  - Hypocalcaemia [None]
  - Accidental exposure to product by child [None]
  - Paradoxical drug reaction [None]
